FAERS Safety Report 12990129 (Version 1)
Quarter: 2016Q4

REPORT INFORMATION
  Report Type: Spontaneous
  Country: US (occurrence: US)
  Receive Date: 20161201
  Receipt Date: 20161201
  Transmission Date: 20170207
  Serious: Yes (Other)
  Sender: FDA-Public Use
  Company Number: US-009507513-1611USA013948

PATIENT
  Sex: Female

DRUGS (1)
  1. JANUVIA [Suspect]
     Active Substance: SITAGLIPTIN PHOSPHATE
     Dosage: 1 PILL PER DAY
     Route: 048

REACTIONS (3)
  - Breast cancer [Unknown]
  - Blood glucose increased [Unknown]
  - Weight abnormal [Unknown]

NARRATIVE: CASE EVENT DATE: 2016
